FAERS Safety Report 6179791-8 (Version None)
Quarter: 2009Q2

REPORT INFORMATION
  Report Type: 
  Country: None (occurrence: None)
  Receive Date: 20090505
  Receipt Date: 20090403
  Transmission Date: 20091009
  Serious: Yes (Hospitalization)
  Sender: FDA-Public Use
  Company Number: FR-PFIZER INC-2009207101

PATIENT

DRUGS (11)
  1. ATARAX [Suspect]
     Dosage: 25 MG, 2X/DAY
     Route: 048
     Dates: start: 20080912, end: 20080928
  2. LOXAPAC [Suspect]
     Indication: ABNORMAL BEHAVIOUR
     Dosage: 14 GTT, 1X/DAY
     Route: 048
     Dates: start: 20080923, end: 20080928
  3. LOXAPAC [Suspect]
     Dosage: UNK
     Dates: start: 20080929
  4. LOXAPINE [Suspect]
     Indication: ABNORMAL BEHAVIOUR
     Dosage: 20 MG, 1X/DAY
     Route: 048
     Dates: start: 20080923
  5. TEGRETOL [Suspect]
     Dosage: 100 MG, 1X/DAY
     Route: 048
     Dates: start: 20080912
  6. ISOPTIN [Concomitant]
     Dosage: 240 MG, UNK
     Route: 048
     Dates: start: 20070101
  7. KARDEGIC [Concomitant]
     Dosage: 160 MG, UNK
     Route: 048
     Dates: start: 20070101
  8. MICARDIS HCT [Concomitant]
     Dosage: 1 DF, UNK
     Route: 048
     Dates: start: 20070901
  9. TANAKAN [Concomitant]
     Dosage: 3 DF, UNK
     Route: 048
     Dates: start: 20070101
  10. XANAX [Concomitant]
     Dosage: 0.125 MG, UNK
     Route: 048
     Dates: start: 20070101
  11. TAHOR [Suspect]
     Dosage: 10 MG, UNK
     Route: 048
     Dates: start: 20070101

REACTIONS (1)
  - MYOCLONUS [None]
